FAERS Safety Report 14638203 (Version 1)
Quarter: 2018Q1

REPORT INFORMATION
  Report Type: Spontaneous
  Country: US (occurrence: US)
  Receive Date: 20180314
  Receipt Date: 20180314
  Transmission Date: 20180509
  Serious: No
  Sender: FDA-Public Use
  Company Number: None

PATIENT
  Age: 59 Year
  Sex: Female
  Weight: 76.5 kg

DRUGS (12)
  1. VITAMIN B12 [Concomitant]
     Active Substance: CYANOCOBALAMIN
  2. ROPINIROLE. [Concomitant]
     Active Substance: ROPINIROLE
  3. BABY ASPIRIN [Concomitant]
     Active Substance: ASPIRIN
  4. LOSARTAN. [Concomitant]
     Active Substance: LOSARTAN
  5. PREGRESTERONE [Concomitant]
  6. LEVOTHYROXINE. [Concomitant]
     Active Substance: LEVOTHYROXINE
  7. MIRALAX [Concomitant]
     Active Substance: POLYETHYLENE GLYCOL 3350
  8. VITAMIN D3 [Concomitant]
     Active Substance: CHOLECALCIFEROL
  9. METOPROLOL. [Concomitant]
     Active Substance: METOPROLOL
  10. LIOTHYRONINE [Concomitant]
     Active Substance: LIOTHYRONINE
  11. CALCIUM 1000 [Concomitant]
  12. CONTRAVE [Suspect]
     Active Substance: BUPROPION HYDROCHLORIDE\NALTREXONE HYDROCHLORIDE
     Indication: WEIGHT
     Dosage: ?          QUANTITY:1 TABLET(S);OTHER FREQUENCY:1;?
     Dates: start: 20180310, end: 20180311

REACTIONS (3)
  - Nausea [None]
  - Insomnia [None]
  - Dizziness [None]

NARRATIVE: CASE EVENT DATE: 20180310
